FAERS Safety Report 9380651 (Version 3)
Quarter: 2013Q3

REPORT INFORMATION
  Report Type: Spontaneous
  Country: US (occurrence: None)
  Receive Date: 20130628
  Receipt Date: 20130717
  Transmission Date: 20140515
  Serious: Yes (Other)
  Sender: FDA-Public Use
  Company Number: 2013P1010031

PATIENT
  Age: 69 Year
  Sex: Male
  Weight: 81.65 kg

DRUGS (4)
  1. RILUTEK [Suspect]
     Indication: AMYOTROPHIC LATERAL SCLEROSIS
     Route: 048
     Dates: start: 20130317, end: 201306
  2. AMLODIPINE [Concomitant]
  3. FISH OIL [Concomitant]
  4. BACLOFEN [Concomitant]

REACTIONS (32)
  - Muscular weakness [None]
  - Local swelling [None]
  - Finger deformity [None]
  - Fall [None]
  - Diplopia [None]
  - Drug ineffective [None]
  - Eye disorder [None]
  - Contusion [None]
  - Eye movement disorder [None]
  - Amyotrophic lateral sclerosis [None]
  - Condition aggravated [None]
  - Face injury [None]
  - Joint injury [None]
  - Skeletal injury [None]
  - Facial pain [None]
  - Musculoskeletal pain [None]
  - Musculoskeletal chest pain [None]
  - Laceration [None]
  - Dyspnoea [None]
  - Dizziness [None]
  - Headache [None]
  - Excoriation [None]
  - Eye swelling [None]
  - Periorbital haematoma [None]
  - Ecchymosis [None]
  - Cerebral atrophy [None]
  - Cerebral ventricle dilatation [None]
  - Cerebral disorder [None]
  - Upper limb fracture [None]
  - Osteoarthritis [None]
  - Spinal osteoarthritis [None]
  - Concussion [None]
